FAERS Safety Report 4550272-8 (Version None)
Quarter: 2005Q1

REPORT INFORMATION
  Report Type: 
  Country: None (occurrence: None)
  Receive Date: 20050107
  Receipt Date: 20040109
  Transmission Date: 20050727
  Serious: Yes (Death, Life-Threatening)
  Sender: FDA-Public Use
  Company Number: 2004IM000023

PATIENT
  Age: 54 Year
  Sex: Male
  Weight: 74.0724 kg

DRUGS (2)
  1. INTERFERON GAMMA-1B [Suspect]
     Indication: HEPATIC CIRRHOSIS
     Dosage: 100 UG; TIW; SUBCUTANEOUS
     Route: 058
     Dates: start: 20021031, end: 20030924
  2. INTERFERON GAMMA-1B [Suspect]
     Indication: HEPATIC FIBROSIS
     Dosage: 100 UG; TIW; SUBCUTANEOUS
     Route: 058
     Dates: start: 20021031, end: 20030924

REACTIONS (1)
  - DEATH [None]
